FAERS Safety Report 6164682-9 (Version None)
Quarter: 2009Q2

REPORT INFORMATION
  Report Type: 
  Country: None (occurrence: None)
  Receive Date: 20090423
  Receipt Date: 20090407
  Transmission Date: 20091009
  Serious: Yes (Other)
  Sender: FDA-Public Use
  Company Number: GR-ROCHE-626460

PATIENT
  Sex: Female

DRUGS (1)
  1. BONIVA [Suspect]
     Indication: OSTEOPOROSIS
     Dosage: DOSE: 1 F.C TAB WAS REPORTED.
     Route: 048
     Dates: start: 20090405

REACTIONS (7)
  - BONE PAIN [None]
  - DIZZINESS [None]
  - DYSPNOEA [None]
  - HEADACHE [None]
  - MYALGIA [None]
  - SPINAL DISORDER [None]
  - VOMITING [None]
